FAERS Safety Report 14545568 (Version 2)
Quarter: 2018Q1

REPORT INFORMATION
  Report Type: Spontaneous
  Country: US (occurrence: US)
  Receive Date: 20180219
  Receipt Date: 20180310
  Transmission Date: 20180509
  Serious: No
  Sender: FDA-Public Use
  Company Number: US-B.I. PHARMACEUTICALS,INC./RIDGEFIELD-2018-BI-008246

PATIENT
  Sex: Female

DRUGS (3)
  1. MIRAPEX ER [Suspect]
     Active Substance: PRAMIPEXOLE DIHYDROCHLORIDE
     Dosage: UNIT DOSE: ONE TO TWO TABLETS
     Route: 048
     Dates: start: 2014, end: 201801
  2. MIRAPEX ER [Suspect]
     Active Substance: PRAMIPEXOLE DIHYDROCHLORIDE
     Route: 048
     Dates: start: 20180201
  3. MIRAPEX ER [Suspect]
     Active Substance: PRAMIPEXOLE DIHYDROCHLORIDE
     Indication: RESTLESS LEGS SYNDROME
     Route: 048
     Dates: start: 2013, end: 2014

REACTIONS (7)
  - Therapeutic response unexpected [Unknown]
  - Somnolence [Not Recovered/Not Resolved]
  - Drug effect incomplete [Recovered/Resolved]
  - Ill-defined disorder [Unknown]
  - Off label use [Unknown]
  - Incorrect dose administered [Recovered/Resolved]
  - Somnolence [Not Recovered/Not Resolved]

NARRATIVE: CASE EVENT DATE: 2013
